FAERS Safety Report 11943302 (Version 1)
Quarter: 2016Q1

REPORT INFORMATION
  Report Type: Spontaneous
  Country: US (occurrence: US)
  Receive Date: 20160125
  Receipt Date: 20160125
  Transmission Date: 20160526
  Serious: No
  Sender: FDA-Public Use
  Company Number: US-UNITED THERAPEUTICS-UNT-2015-011172

PATIENT
  Age: 67 Year
  Sex: Female
  Weight: 50.79 kg

DRUGS (10)
  1. TYVASO [Suspect]
     Active Substance: TREPROSTINIL
     Dosage: UNK
  2. TYVASO [Suspect]
     Active Substance: TREPROSTINIL
     Dosage: UNK
  3. REVATIO [Concomitant]
     Active Substance: SILDENAFIL CITRATE
     Indication: PRODUCT USED FOR UNKNOWN INDICATION
     Dosage: UNK
     Route: 065
  4. TYVASO [Suspect]
     Active Substance: TREPROSTINIL
     Indication: PULMONARY ARTERIAL HYPERTENSION
     Dosage: 18-54 MICROGRAMS, QID
     Dates: start: 20150211
  5. TYVASO [Suspect]
     Active Substance: TREPROSTINIL
     Dosage: UNK
  6. TRACLEER [Concomitant]
     Active Substance: BOSENTAN
     Indication: PRODUCT USED FOR UNKNOWN INDICATION
     Dosage: UNK
  7. REMODULIN [Suspect]
     Active Substance: TREPROSTINIL
     Indication: PULMONARY ARTERIAL HYPERTENSION
     Dosage: 0.022 ?G/KG/MIN, CONTINUING
     Route: 058
     Dates: start: 20141103
  8. TYVASO [Suspect]
     Active Substance: TREPROSTINIL
     Dosage: 6-54 MICROGRAMS, QID
  9. REMODULIN [Suspect]
     Active Substance: TREPROSTINIL
     Dosage: UNK
     Route: 058
  10. REMODULIN [Suspect]
     Active Substance: TREPROSTINIL
     Dosage: UNK
     Route: 058

REACTIONS (18)
  - Infusion site pain [Recovered/Resolved]
  - Product use issue [Unknown]
  - Pain in extremity [Unknown]
  - Cough [Unknown]
  - Infusion site papule [Unknown]
  - Infusion site warmth [Unknown]
  - Groin pain [Unknown]
  - Malaise [Unknown]
  - Dizziness [Unknown]
  - Infusion site pruritus [Not Recovered/Not Resolved]
  - Rash [Unknown]
  - Accidental overdose [Unknown]
  - Infusion site swelling [Unknown]
  - Wheezing [Unknown]
  - Infusion site discharge [Unknown]
  - Arthralgia [Unknown]
  - Dermatitis contact [Not Recovered/Not Resolved]
  - Localised oedema [Unknown]

NARRATIVE: CASE EVENT DATE: 201509
